FAERS Safety Report 22029037 (Version 1)
Quarter: 2023Q1

REPORT INFORMATION
  Report Type: Spontaneous
  Country: US (occurrence: US)
  Receive Date: 20230223
  Receipt Date: 20230223
  Transmission Date: 20230418
  Serious: No
  Sender: FDA-Public Use
  Company Number: US-TEVA-2023-US-2855708

PATIENT
  Sex: Female

DRUGS (1)
  1. LIDOCAINE [Suspect]
     Active Substance: LIDOCAINE
     Indication: Pain
     Route: 065

REACTIONS (4)
  - Device defective [Unknown]
  - Device leakage [Unknown]
  - Product adhesion issue [Unknown]
  - Drug ineffective [Unknown]
